FAERS Safety Report 12408854 (Version 2)
Quarter: 2016Q2

REPORT INFORMATION
  Report Type: Report from Study
  Country: FR (occurrence: FR)
  Receive Date: 20160526
  Receipt Date: 20160613
  Transmission Date: 20160815
  Serious: Yes (Hospitalization, Other)
  Sender: FDA-Public Use
  Company Number: FR-CELGENEUS-FRA-2016046534

PATIENT
  Age: 80 Year
  Sex: Male
  Weight: 72 kg

DRUGS (5)
  1. AZACITIDINE INJECTABLE [Suspect]
     Active Substance: AZACITIDINE
     Route: 065
     Dates: start: 20160215, end: 20160221
  2. NOVOMIX [Concomitant]
     Active Substance: INSULIN ASPART
     Indication: TYPE 2 DIABETES MELLITUS
     Dosage: 2.5 GRAM
     Route: 058
  3. VALPROIC ACID. [Suspect]
     Active Substance: VALPROIC ACID
     Indication: MYELODYSPLASTIC SYNDROME
     Route: 048
     Dates: start: 20120516
  4. AZACITIDINE INJECTABLE [Suspect]
     Active Substance: AZACITIDINE
     Indication: MYELODYSPLASTIC SYNDROME
     Route: 058
     Dates: start: 20120516
  5. LOPRESSOR [Concomitant]
     Active Substance: METOPROLOL TARTRATE
     Indication: HYPERTENSION
     Route: 048

REACTIONS (4)
  - Pericardial effusion [Unknown]
  - Cardiac failure [Unknown]
  - Aortic stenosis [Recovered/Resolved]
  - Aortic valve incompetence [Recovered/Resolved]

NARRATIVE: CASE EVENT DATE: 20151118
